FAERS Safety Report 4978414-0 (Version None)
Quarter: 2006Q2

REPORT INFORMATION
  Report Type: 
  Country: None (occurrence: None)
  Receive Date: 20060417
  Receipt Date: 20060331
  Transmission Date: 20061013
  Serious: Yes (Hospitalization)
  Sender: FDA-Public Use
  Company Number: DSA_27812_2006

PATIENT
  Age: 48 Year
  Sex: Male

DRUGS (4)
  1. TAVOR [Suspect]
     Dosage: DF ONCE
     Dates: start: 20060220, end: 20060220
  2. TAVOR [Suspect]
     Dosage: DF PO
     Route: 048
  3. CLOZAPINE [Suspect]
     Dosage: DF ONCE
     Dates: start: 20060220, end: 20060220
  4. CLOZAPINE [Suspect]
     Dosage: DF PO
     Route: 048

REACTIONS (5)
  - DRUG ABUSER [None]
  - MULTIPLE DRUG OVERDOSE [None]
  - RESPIRATORY FAILURE [None]
  - SALIVARY HYPERSECRETION [None]
  - SOMNOLENCE [None]
